FAERS Safety Report 9919438 (Version 2)
Quarter: 2014Q1

REPORT INFORMATION
  Report Type: Spontaneous
  Country: DE (occurrence: DE)
  Receive Date: 20140224
  Receipt Date: 20140224
  Transmission Date: 20141002
  Serious: Yes (Other)
  Sender: FDA-Public Use
  Company Number: DE-INCYTE CORPORATION-2013IN002564

PATIENT
  Sex: Male
  Weight: 85 kg

DRUGS (6)
  1. JAKAVI [Suspect]
     Indication: MYELOFIBROSIS
     Dosage: 15 MG, BID
     Route: 065
     Dates: end: 201303
  2. JAKAVI [Suspect]
     Dosage: 20 MG, BID
     Route: 065
     Dates: start: 20130318
  3. JAKAVI [Suspect]
     Dosage: 40 MG, QD
     Dates: start: 20130323
  4. ALLOBETA [Concomitant]
  5. NEBIVOLOL [Concomitant]
  6. VALSARTAN [Concomitant]

REACTIONS (6)
  - Vertigo [Recovered/Resolved]
  - Dysstasia [Recovered/Resolved]
  - Nausea [Recovered/Resolved]
  - Vomiting [Recovered/Resolved]
  - Muscular weakness [Unknown]
  - Dizziness [Unknown]
